FAERS Safety Report 7113924-1 (Version None)
Quarter: 2010Q4

REPORT INFORMATION
  Report Type: 
  Country: None (occurrence: None)
  Receive Date: 20101119
  Receipt Date: 20101115
  Transmission Date: 20110411
  Serious: Yes (Hospitalization, Congenital Anomaly)
  Sender: FDA-Public Use
  Company Number: A0756635A

PATIENT
  Sex: Female
  Weight: 2.7 kg

DRUGS (3)
  1. PAROXETINE HCL [Suspect]
     Indication: DEPRESSION
     Dates: start: 20060101, end: 20060201
  2. MOTRIN [Concomitant]
  3. PRENATAL VITAMINS [Concomitant]

REACTIONS (4)
  - ARTERIOVENOUS MALFORMATION [None]
  - ATRIAL SEPTAL DEFECT [None]
  - CARDIAC FAILURE [None]
  - DRUG EXPOSURE DURING PREGNANCY [None]
